FAERS Safety Report 11123510 (Version 1)
Quarter: 2015Q2

REPORT INFORMATION
  Report Type: Spontaneous
  Country: US (occurrence: US)
  Receive Date: 20150519
  Receipt Date: 20150519
  Transmission Date: 20150821
  Serious: Yes (Hospitalization)
  Sender: FDA-Public Use
  Company Number: US-ASTRAZENECA-2015SE43953

PATIENT
  Age: 24 Year
  Sex: Male
  Weight: 73 kg

DRUGS (14)
  1. KLONOPIN [Concomitant]
     Active Substance: CLONAZEPAM
     Indication: ANXIETY
     Route: 048
  2. KLONOPIN [Concomitant]
     Active Substance: CLONAZEPAM
     Indication: POLYDIPSIA
     Route: 048
  3. SEROQUEL [Suspect]
     Active Substance: QUETIAPINE FUMARATE
     Indication: MANIA
     Route: 048
     Dates: end: 20150405
  4. SEROQUEL [Suspect]
     Active Substance: QUETIAPINE FUMARATE
     Indication: BIPOLAR I DISORDER
     Route: 048
     Dates: start: 2004, end: 201412
  5. SEROQUEL [Suspect]
     Active Substance: QUETIAPINE FUMARATE
     Indication: MANIA
     Route: 048
     Dates: start: 2004, end: 201412
  6. SEROQUEL [Suspect]
     Active Substance: QUETIAPINE FUMARATE
     Indication: BIPOLAR I DISORDER
     Route: 048
     Dates: start: 201501, end: 201503
  7. SEROQUEL [Suspect]
     Active Substance: QUETIAPINE FUMARATE
     Indication: BIPOLAR I DISORDER
     Route: 048
     Dates: end: 20150405
  8. SEROQUEL [Suspect]
     Active Substance: QUETIAPINE FUMARATE
     Indication: BIPOLAR I DISORDER
     Route: 048
     Dates: end: 20150405
  9. KLONOPIN [Concomitant]
     Active Substance: CLONAZEPAM
     Indication: MANIA
     Route: 048
  10. KLONOPIN [Concomitant]
     Active Substance: CLONAZEPAM
     Indication: PANIC ATTACK
     Route: 048
  11. KLONOPIN [Concomitant]
     Active Substance: CLONAZEPAM
     Indication: CLAUSTROPHOBIA
     Route: 048
  12. SEROQUEL [Suspect]
     Active Substance: QUETIAPINE FUMARATE
     Indication: BIPOLAR I DISORDER
     Route: 048
     Dates: start: 2004, end: 201412
  13. SEROQUEL [Suspect]
     Active Substance: QUETIAPINE FUMARATE
     Indication: BIPOLAR I DISORDER
     Route: 048
     Dates: start: 201501, end: 201503
  14. SEROQUEL [Suspect]
     Active Substance: QUETIAPINE FUMARATE
     Indication: MANIA
     Route: 048
     Dates: start: 201501, end: 201503

REACTIONS (16)
  - Abnormal behaviour [Unknown]
  - Disturbance in attention [Unknown]
  - Drug dose omission [Unknown]
  - Swollen tongue [Unknown]
  - Mania [Unknown]
  - Dyskinesia [Unknown]
  - Weight increased [Unknown]
  - Insomnia [Unknown]
  - Blister [Unknown]
  - Mental disorder [Unknown]
  - Anxiety [Unknown]
  - Irritability [Unknown]
  - Hallucination [Unknown]
  - Phobia [Unknown]
  - Joint lock [Unknown]
  - Initial insomnia [Unknown]

NARRATIVE: CASE EVENT DATE: 2008
